FAERS Safety Report 20025755 (Version 1)
Quarter: 2021Q4

REPORT INFORMATION
  Report Type: Spontaneous
  Country: US (occurrence: US)
  Receive Date: 20211102
  Receipt Date: 20211102
  Transmission Date: 20220303
  Serious: No
  Sender: FDA-Public Use
  Company Number: US-PERRIGO-20US015756

PATIENT
  Age: 71 Year
  Sex: Female
  Weight: 54.422 kg

DRUGS (2)
  1. ERYTHROMYCIN [Suspect]
     Active Substance: ERYTHROMYCIN
     Indication: Entropion
     Dosage: 1 CM, ONCE NIGHTLY
     Route: 047
     Dates: start: 20201027, end: 20201028
  2. THERATEARS [Concomitant]
     Active Substance: CARBOXYMETHYLCELLULOSE SODIUM
     Indication: Entropion
     Dosage: UNK
     Route: 065
     Dates: start: 20201027

REACTIONS (4)
  - Conjunctival haemorrhage [Recovering/Resolving]
  - Eye swelling [Recovering/Resolving]
  - Ocular hyperaemia [Recovering/Resolving]
  - Off label use [Recovered/Resolved]

NARRATIVE: CASE EVENT DATE: 20201027
